FAERS Safety Report 25048109 (Version 3)
Quarter: 2025Q2

REPORT INFORMATION
  Report Type: Report from Study
  Country: US (occurrence: US)
  Receive Date: 20250306
  Receipt Date: 20250404
  Transmission Date: 20250716
  Serious: Yes (Other)
  Sender: ABBVIE
  Company Number: US-ABBVIE-6163341

PATIENT
  Age: 65 Year
  Sex: Female
  Weight: 90.718 kg

DRUGS (6)
  1. HUMIRA [Suspect]
     Active Substance: ADALIMUMAB
     Indication: Uveitis
     Dosage: FORM STRENGTH: 40 MILLIGRAM
     Route: 058
     Dates: start: 202408, end: 20250213
  2. HUMIRA [Suspect]
     Active Substance: ADALIMUMAB
     Route: 058
     Dates: start: 20250216, end: 20250225
  3. HUMIRA [Suspect]
     Active Substance: ADALIMUMAB
     Dosage: FORM STRENGTH: 40 MILLIGRAM
     Route: 058
     Dates: start: 20250324
  4. TYLENOL [Concomitant]
     Active Substance: ACETAMINOPHEN
     Indication: Headache
  5. ASPIRIN [Concomitant]
     Active Substance: ASPIRIN
     Indication: Product used for unknown indication
  6. ROSUVASTATIN [Concomitant]
     Active Substance: ROSUVASTATIN
     Indication: Blood cholesterol abnormal

REACTIONS (7)
  - Intraocular pressure increased [Recovered/Resolved]
  - Vision blurred [Recovered/Resolved]
  - Intraocular pressure increased [Not Recovered/Not Resolved]
  - Vision blurred [Recovered/Resolved]
  - Foreign body in eye [Unknown]
  - Surgical failure [Unknown]
  - Uveitis [Unknown]

NARRATIVE: CASE EVENT DATE: 20250101
